FAERS Safety Report 10027400 (Version 2)
Quarter: 2014Q2

REPORT INFORMATION
  Report Type: Spontaneous
  Country: US (occurrence: US)
  Receive Date: 20140321
  Receipt Date: 20140408
  Transmission Date: 20141212
  Serious: No
  Sender: FDA-Public Use
  Company Number: US-PFIZER INC-2014077797

PATIENT
  Age: 44 Year
  Sex: Male

DRUGS (7)
  1. PENICILLIN NOS [Suspect]
     Dosage: UNK
  2. LIPITOR [Concomitant]
     Dosage: 20 MG, 1X/DAY
  3. NEURONTIN [Concomitant]
     Dosage: 300 MG, 1X/DAY
  4. ZOLOFT [Concomitant]
     Dosage: 100 MG, 1X/DAY
  5. PRILOSEC [Concomitant]
     Dosage: 20 MG, 1X/DAY
  6. COZAAR [Concomitant]
     Dosage: 50/12.5MG, 1X/DAY
  7. LORTAB [Concomitant]
     Dosage: 7.5 MG, 3X/DAY

REACTIONS (1)
  - Drug hypersensitivity [Unknown]
